FAERS Safety Report 4980920-X (Version None)
Quarter: 2006Q2

REPORT INFORMATION
  Report Type: 
  Country: None (occurrence: None)
  Receive Date: 20060424
  Receipt Date: 20050325
  Transmission Date: 20061013
  Serious: Yes (Hospitalization, Disabling, Other)
  Sender: FDA-Public Use
  Company Number: US-MERCK-0503USA04985

PATIENT
  Age: 42 Year
  Sex: Female
  Weight: 59 kg

DRUGS (10)
  1. VIOXX [Suspect]
     Indication: PAIN IN EXTREMITY
     Route: 048
     Dates: start: 19990101, end: 20031101
  2. VIOXX [Suspect]
     Indication: ARTHRITIS
     Route: 048
     Dates: start: 19990101, end: 20031101
  3. ZOCOR [Concomitant]
     Route: 048
  4. PLAVIX [Concomitant]
     Route: 065
  5. HYDROCODONE BITARTRATE [Concomitant]
     Route: 065
  6. LEVOXYL [Concomitant]
     Route: 065
  7. ENALAPRIL MALEATE [Concomitant]
     Route: 065
  8. ASPIRIN [Concomitant]
     Route: 065
  9. NORCO [Concomitant]
     Route: 065
  10. SOMA [Concomitant]
     Route: 065

REACTIONS (39)
  - ANAEMIA MACROCYTIC [None]
  - ARTHROPATHY [None]
  - BLOOD GLUCOSE DECREASED [None]
  - CARDIOMEGALY [None]
  - CAROTID BRUIT [None]
  - CARPAL TUNNEL SYNDROME [None]
  - CEREBROVASCULAR ACCIDENT [None]
  - CHEST PAIN [None]
  - CONTUSION [None]
  - DEHYDRATION [None]
  - DEPRESSED LEVEL OF CONSCIOUSNESS [None]
  - DERMATITIS [None]
  - DIABETIC NEUROPATHY [None]
  - EUSTACHIAN TUBE DYSFUNCTION [None]
  - FIBROMYALGIA [None]
  - FURUNCLE [None]
  - HYPERCHOLESTEROLAEMIA [None]
  - HYPERKALAEMIA [None]
  - HYPERTENSION [None]
  - HYPOAESTHESIA [None]
  - HYPOGLYCAEMIA [None]
  - IMPAIRED GASTRIC EMPTYING [None]
  - LACUNAR INFARCTION [None]
  - MENTAL STATUS CHANGES [None]
  - MIGRAINE [None]
  - MYOCARDIAL INFARCTION [None]
  - NAUSEA [None]
  - OEDEMA [None]
  - OSTEOPOROSIS [None]
  - PANCREATITIS ACUTE [None]
  - PERIARTHRITIS [None]
  - PNEUMONIA [None]
  - PROTEINURIA [None]
  - RENAL FAILURE [None]
  - RENAL FAILURE ACUTE [None]
  - RHINITIS ALLERGIC [None]
  - TORTICOLLIS [None]
  - URINARY TRACT INFECTION [None]
  - VASCULAR INSUFFICIENCY [None]
